FAERS Safety Report 9127052 (Version 1)
Quarter: 2013Q1

REPORT INFORMATION
  Report Type: Spontaneous
  Country: NL (occurrence: NL)
  Receive Date: 20130122
  Receipt Date: 20130122
  Transmission Date: 20140127
  Serious: Yes (Hospitalization, Other)
  Sender: FDA-Public Use
  Company Number: NL-ELI_LILLY_AND_COMPANY-NL201301003566

PATIENT
  Age: 66 Year
  Sex: Female
  Weight: 102 kg

DRUGS (2)
  1. ACTOS [Suspect]
     Indication: DIABETES MELLITUS
     Dosage: 30 MG, QD
     Dates: start: 2008, end: 20121218
  2. METFORMIN [Concomitant]
     Dosage: 500 MG, BID
     Dates: start: 1996

REACTIONS (2)
  - Ureteric cancer [Not Recovered/Not Resolved]
  - Bladder cancer [Unknown]
